FAERS Safety Report 21660581 (Version 2)
Quarter: 2023Q1

REPORT INFORMATION
  Report Type: Other
  Country: US (occurrence: None)
  Receive Date: 20221130
  Receipt Date: 20230109
  Transmission Date: 20230417
  Serious: Yes (Other)
  Sender: FDA-Public Use
  Company Number: US-ROCHE-3227200

PATIENT
  Sex: Male

DRUGS (1)
  1. AVASTIN [Suspect]
     Active Substance: BEVACIZUMAB
     Indication: Macular degeneration
     Route: 050
     Dates: start: 2022

REACTIONS (5)
  - Off label use [Unknown]
  - Cerebrovascular accident [Recovered/Resolved with Sequelae]
  - Movement disorder [Not Recovered/Not Resolved]
  - Cataract [Unknown]
  - Obesity [Unknown]

NARRATIVE: CASE EVENT DATE: 20220101
